FAERS Safety Report 4561209-X (Version None)
Quarter: 2005Q1

REPORT INFORMATION
  Report Type: 
  Country: None (occurrence: None)
  Receive Date: 20050121
  Receipt Date: 20050103
  Transmission Date: 20050727
  Serious: Yes (Death)
  Sender: FDA-Public Use
  Company Number: 1719

PATIENT
  Age: 18 Year
  Sex: Male
  Weight: 81.6475 kg

DRUGS (7)
  1. AVINZA [Suspect]
     Dosage: 60 MG
  2. BENTYL [Suspect]
  3. DEXTRO AMPHETAMINE SULFATE TAB [Suspect]
  4. PERCOCET [Suspect]
  5. DICYCLOMINE [Concomitant]
  6. DEXTRO AMPHETAMINE SULFATE TAB [Concomitant]
  7. OXYCODONE AND ACETAMINOPHEN [Concomitant]

REACTIONS (10)
  - ACCIDENTAL OVERDOSE [None]
  - CARDIOMEGALY [None]
  - COMA [None]
  - CORONARY ARTERY ATHEROSCLEROSIS [None]
  - DRUG TOXICITY [None]
  - PLEURAL DISORDER [None]
  - PULMONARY OEDEMA [None]
  - SELF-MEDICATION [None]
  - VENTRICULAR HYPERTROPHY [None]
  - VOMITING [None]
